FAERS Safety Report 9011808 (Version 1)
Quarter: 2012Q4

REPORT INFORMATION
  Report Type: Spontaneous
  Country: US (occurrence: None)
  Receive Date: 20121228
  Receipt Date: 20121228
  Transmission Date: 20130627
  Serious: Yes (Other)
  Sender: FDA-Public Use
  Company Number: JPI-P-026800

PATIENT
  Age: 45 Year
  Sex: Female
  Weight: 88.91 kg

DRUGS (19)
  1. XYREM (500 MILLIGRAM/MILLILITERS, SOLUTION) (SODIUM OXYBATE) [Suspect]
     Indication: CATAPLEXY
     Route: 048
     Dates: start: 20110314, end: 2012
  2. XYREM (500 MILLIGRAM/MILLILITERS, SOLUTION) (SODIUM OXYBATE) [Suspect]
     Indication: CATAPLEXY
     Route: 048
  3. XYREM (500 MILLIGRAM/MILLILITERS, SOLUTION) (SODIUM OXYBATE) [Suspect]
     Indication: CATAPLEXY
     Dates: start: 20110621
  4. MULTIVITAMINS, PLAIN (CAPSULES) [Concomitant]
  5. ARMODAFINIL [Concomitant]
  6. GABAPENTIN [Concomitant]
  7. MEDROXYPROGESTERONE [Concomitant]
  8. DOCUSATE SODIIUM (CAPSULES [Concomitant]
  9. IMIPRAMINE (TABLETS) [Concomitant]
  10. BUPROPION HYDROCHLORIDE (TABLETS) [Concomitant]
  11. CALCIUM + D [Concomitant]
  12. CLOTRIMAZOLE (CREAM) [Concomitant]
  13. FEXOFENADINE (TABLETS) [Concomitant]
  14. FIBER (CHEWABLE TABLET) [Concomitant]
  15. FISH OIL (CAPSULES) [Concomitant]
  16. LISINOPRIL/HYDROCHLOROTHIAZIDE (TABLETS) [Concomitant]
  17. ACTAMINOPHEN EXTENDED RELEASE [Concomitant]
  18. VITAMIN B12 (TABLETS) [Concomitant]
  19. VITAMIN D (TABLETS) [Concomitant]

REACTIONS (29)
  - Thrombosis [None]
  - Cerebral infarction [None]
  - Epilepsy [None]
  - Blood pressure increased [None]
  - Cataplexy [None]
  - Condition aggravated [None]
  - Fall [None]
  - Weight increased [None]
  - Initial insomnia [None]
  - Drug ineffective [None]
  - Head injury [None]
  - Disorientation [None]
  - Encephalopathy [None]
  - Foot fracture [None]
  - Feeling of despair [None]
  - Flat affect [None]
  - Staring [None]
  - Abscess [None]
  - Sinus tachycardia [None]
  - Left atrial dilatation [None]
  - White blood cell count increased [None]
  - Mental status changes [None]
  - Hyponatraemia [None]
  - Aphonia [None]
  - Gait disturbance [None]
  - Asthenia [None]
  - Kyphoscoliosis [None]
  - Scoliosis [None]
  - Treatment noncompliance [None]
